FAERS Safety Report 8778763 (Version 1)
Quarter: 2012Q4

REPORT INFORMATION
  Report Type: 
  Country: US (occurrence: US)
  Receive Date: 20120912
  Receipt Date: 20120912
  Transmission Date: 20130627
  Serious: No
  Sender: FDA-Public Use
  Company Number: US-PFIZER INC-2012221286

PATIENT
  Sex: Male

DRUGS (1)
  1. VIAGRA [Suspect]
     Dosage: 100 mg, UNK

REACTIONS (7)
  - Dysphagia [Unknown]
  - Cyanopsia [Unknown]
  - Nasal congestion [Unknown]
  - Headache [Unknown]
  - Rhinorrhoea [Unknown]
  - Depressed mood [Unknown]
  - Drug ineffective [Unknown]
